FAERS Safety Report 4634403-7 (Version None)
Quarter: 2005Q2

REPORT INFORMATION
  Report Type: 
  Country: None (occurrence: None)
  Receive Date: 20050411
  Receipt Date: 20020108
  Transmission Date: 20051028
  Serious: No
  Sender: FDA-Public Use
  Company Number: 3254

PATIENT
  Age: 14 Year

DRUGS (5)
  1. VINCRISTINE [Suspect]
     Indication: ADULT T-CELL LYMPHOMA/LEUKAEMIA
  2. ITRACONAZOLE [Concomitant]
  3. DAUNORUBICIN [Concomitant]
  4. ELSPAR [Concomitant]
  5. PREDNISOLONE [Concomitant]

REACTIONS (9)
  - ABDOMINAL PAIN [None]
  - CONSTIPATION [None]
  - CONVULSION [None]
  - DEPRESSION [None]
  - DRUG INTERACTION [None]
  - DRUG TOXICITY [None]
  - ENCEPHALOPATHY [None]
  - MUSCLE SPASMS [None]
  - NEUROTOXICITY [None]
